FAERS Safety Report 6009122-5 (Version None)
Quarter: 2008Q4

REPORT INFORMATION
  Report Type: 
  Country: None (occurrence: None)
  Receive Date: 20081216
  Receipt Date: 20081204
  Transmission Date: 20090506
  Serious: Yes (Other)
  Sender: FDA-Public Use
  Company Number: 2007-04252

PATIENT
  Age: 68 Year
  Sex: Female
  Weight: 44 kg

DRUGS (7)
  1. VELCADE [Suspect]
     Indication: MULTIPLE MYELOMA
     Dosage: 1.65 MG/M2, INTRAVENOUS; 1.65 MG, INTRAVENOUS; INTRAVENOUS; 1.65 MG, INTRAVENOUS
     Route: 042
     Dates: start: 20070604, end: 20070705
  2. VELCADE [Suspect]
     Indication: MULTIPLE MYELOMA
     Dosage: 1.65 MG/M2, INTRAVENOUS; 1.65 MG, INTRAVENOUS; INTRAVENOUS; 1.65 MG, INTRAVENOUS
     Route: 042
     Dates: start: 20070813, end: 20070913
  3. VELCADE [Suspect]
     Indication: MULTIPLE MYELOMA
     Dosage: 1.65 MG/M2, INTRAVENOUS; 1.65 MG, INTRAVENOUS; INTRAVENOUS; 1.65 MG, INTRAVENOUS
     Route: 042
     Dates: start: 20071004, end: 20080124
  4. VELCADE [Suspect]
     Indication: MULTIPLE MYELOMA
     Dosage: 1.65 MG/M2, INTRAVENOUS; 1.65 MG, INTRAVENOUS; INTRAVENOUS; 1.65 MG, INTRAVENOUS
     Route: 042
     Dates: start: 20070927
  5. PREDNISOLONE [Concomitant]
  6. ALENDRONATE SODIUM (BONALON) (ALENDRONATE SODIUM) [Concomitant]
  7. ITRACONAZOLE [Concomitant]

REACTIONS (2)
  - BONE MARROW FAILURE [None]
  - PLATELET COUNT DECREASED [None]
